FAERS Safety Report 4839735-5 (Version None)
Quarter: 2005Q4

REPORT INFORMATION
  Report Type: 
  Country: None (occurrence: None)
  Receive Date: 20051129
  Receipt Date: 20050722
  Transmission Date: 20060501
  Serious: No
  Sender: FDA-Public Use
  Company Number: US-GLAXOSMITHKLINE-A0567248A

PATIENT
  Age: 23 Year
  Sex: Female

DRUGS (4)
  1. WELLBUTRIN SR [Suspect]
     Indication: DEPRESSION
     Dosage: 150MG TWICE PER DAY
     Route: 048
     Dates: start: 20040101, end: 20040501
  2. DIAZEPAM [Concomitant]
     Indication: ANXIETY
     Dosage: 5MG AT NIGHT
     Route: 048
     Dates: start: 20040301, end: 20040701
  3. YASMIN [Concomitant]
     Route: 048
     Dates: start: 20030901
  4. SEROQUEL [Concomitant]
     Indication: INSOMNIA
     Dosage: 25MG AS REQUIRED
     Route: 048
     Dates: start: 20031101, end: 20041001

REACTIONS (2)
  - ALOPECIA [None]
  - ANTISOCIAL PERSONALITY DISORDER [None]
